FAERS Safety Report 9094644 (Version 1)
Quarter: 2013Q1

REPORT INFORMATION
  Report Type: Spontaneous
  Country: ES (occurrence: ES)
  Receive Date: 20130204
  Receipt Date: 20130204
  Transmission Date: 20140127
  Serious: Yes (Other)
  Sender: FDA-Public Use
  Company Number: ES-CELGENEUS-144-21880-13013945

PATIENT
  Sex: Male

DRUGS (9)
  1. REVLIMID [Suspect]
     Indication: PLASMA CELL MYELOMA
     Dosage: 25 MILLIGRAM
     Route: 048
  2. REVLIMID [Suspect]
     Dosage: 25 MILLIGRAM
     Route: 048
  3. REVLIMID [Suspect]
     Dosage: 10 MILLIGRAM
     Route: 048
  4. REVLIMID [Suspect]
     Dosage: 5 MILLIGRAM
     Route: 048
     Dates: start: 200907
  5. DEXAMETHASONE [Concomitant]
     Indication: PLASMA CELL MYELOMA
     Dosage: 40 MILLIGRAM
     Route: 065
  6. DEXAMETHASONE [Concomitant]
     Dosage: 20 MILLIGRAM
     Route: 065
  7. G-CSF [Concomitant]
     Indication: PRODUCT USED FOR UNKNOWN INDICATION
     Route: 065
  8. DICOUMARIN [Concomitant]
     Indication: THROMBOSIS PROPHYLAXIS
     Route: 065
  9. CYTARABINE [Concomitant]
     Indication: PRODUCT USED FOR UNKNOWN INDICATION
     Route: 065

REACTIONS (6)
  - Disseminated intravascular coagulation [Unknown]
  - Mitral valve incompetence [Unknown]
  - Neutropenia [Unknown]
  - Diarrhoea [Unknown]
  - Respiratory tract infection [Unknown]
  - Neutropenia [Unknown]
